FAERS Safety Report 7423502-2 (Version None)
Quarter: 2011Q2

REPORT INFORMATION
  Report Type: 
  Country: None (occurrence: None)
  Receive Date: 20110419
  Receipt Date: 20110304
  Transmission Date: 20111010
  Serious: Yes (Hospitalization)
  Sender: FDA-Public Use
  Company Number: US-BAYER-201038235NA

PATIENT
  Age: 46 Year
  Sex: Female

DRUGS (15)
  1. YAZ [Suspect]
     Indication: ACNE
  2. OCELLA [Suspect]
     Indication: CONTRACEPTION
     Dosage: SAMPLES GIVEN, 30 DAY SUPPLY
     Dates: start: 20010101, end: 20050101
  3. TENUATE DOSPAN [Concomitant]
     Dosage: UNK
     Dates: start: 19970101, end: 20080101
  4. ATENOLOL [Concomitant]
     Dosage: 100 MG, QD
     Route: 048
     Dates: start: 20030414
  5. CELEBREX [Concomitant]
     Dosage: 200 MG, UNK
     Dates: start: 20060829
  6. EFFEXOR [Concomitant]
     Dosage: 150 MG, QD
     Route: 048
     Dates: start: 20030414
  7. METHADONE [Concomitant]
     Dosage: 40 MG, QD
     Route: 048
     Dates: start: 20030414
  8. SYNTHROID [Concomitant]
     Dosage: 0.5 MG, QD
     Route: 048
     Dates: start: 20030414
  9. CAFFEINE [Concomitant]
     Dosage: UNK
     Dates: start: 19980101, end: 20080101
  10. ASPIRIN [Concomitant]
     Dosage: 325 MG, QD
     Route: 048
     Dates: start: 20030414
  11. HYZAAR [Concomitant]
     Dosage: 12.5 MG, QD
     Route: 048
     Dates: start: 20030414
  12. OCELLA [Suspect]
     Indication: ACNE
  13. LEXAPRO [Concomitant]
     Dosage: UNK UNK, QD
     Route: 048
     Dates: start: 20030414
  14. YAZ [Suspect]
     Indication: CONTRACEPTION
     Dosage: SAMPLES GIVEN, 30 DAY SUPPLY
     Dates: start: 20010101, end: 20050101
  15. PRILOSEC [Concomitant]
     Dosage: 20 MG, QD
     Route: 048
     Dates: start: 20030414

REACTIONS (3)
  - MYOCARDIAL INFARCTION [None]
  - GALLBLADDER DISORDER [None]
  - INJURY [None]
